FAERS Safety Report 6840220-X (Version None)
Quarter: 2010Q3

REPORT INFORMATION
  Report Type: 
  Country: None (occurrence: None)
  Receive Date: 20100714
  Receipt Date: 20100630
  Transmission Date: 20110219
  Serious: Yes (Other)
  Sender: FDA-Public Use
  Company Number: PHHY2010IT43263

PATIENT
  Sex: Female

DRUGS (4)
  1. TAREG [Suspect]
     Indication: HYPERTENSION
     Dosage: 160 MG, UNK
     Route: 048
     Dates: start: 20100601, end: 20100620
  2. LOVASTATIN [Suspect]
     Indication: HYPERCHOLESTEROLAEMIA
     Dosage: 20 MG, UNK
     Route: 048
     Dates: start: 20100601, end: 20100620
  3. SANDOMIGRAN [Concomitant]
     Indication: MIGRAINE
     Dosage: 0.5 MG, UNK
  4. MAXALT [Concomitant]
     Dosage: UNK

REACTIONS (2)
  - BRONCHOSPASM [None]
  - URTICARIA [None]
